FAERS Safety Report 7989137-8 (Version None)
Quarter: 2011Q4

REPORT INFORMATION
  Report Type: 
  Country: None (occurrence: None)
  Receive Date: 20111219
  Receipt Date: 20110818
  Transmission Date: 20120403
  Serious: Yes (Other)
  Sender: FDA-Public Use
  Company Number: US-UCBSA-047559

PATIENT
  Age: 24 Hour
  Sex: Male
  Weight: 2.99 kg

DRUGS (8)
  1. PRENATAL COMPLETE [Concomitant]
     Indication: VITAMIN SUPPLEMENTATION
     Route: 064
     Dates: end: 20110615
  2. KEPPRA XR [Suspect]
     Indication: CONVULSION
     Dosage: TOTAL DAILY DOSE : 3000 MG
     Route: 064
     Dates: start: 20101001, end: 20110615
  3. FOLIC ACID [Concomitant]
     Indication: PREGNANCY
     Route: 064
     Dates: start: 20100101, end: 20110615
  4. PEPCID AC [Concomitant]
     Indication: DYSPEPSIA
     Route: 064
     Dates: end: 20110615
  5. KEPPRA XR [Suspect]
     Indication: EPILEPSY
     Dosage: TOTAL DAILY DOSE : 3000 MG
     Route: 064
     Dates: start: 20101001, end: 20110615
  6. ACETAMINOPHEN [Concomitant]
     Indication: HEADACHE
     Dosage: 1 CAPSULE AS NEEDED
     Route: 064
     Dates: end: 20110615
  7. TRAZODONE HCL [Concomitant]
     Indication: ANXIETY
     Route: 064
     Dates: start: 20100101, end: 20100101
  8. FERROUS SULFATE TAB [Concomitant]
     Indication: ANAEMIA
     Route: 064

REACTIONS (2)
  - PREMATURE BABY [None]
  - FOETAL EXPOSURE DURING PREGNANCY [None]
